FAERS Safety Report 8499711-0 (Version None)
Quarter: 2012Q3

REPORT INFORMATION
  Report Type: 
  Country: None (occurrence: None)
  Receive Date: 20120710
  Receipt Date: 20120628
  Transmission Date: 20120928
  Serious: Yes (Other)
  Sender: FDA-Public Use
  Company Number: JP-VERTEX PHARMACEUTICALS INC.-AE-2012-009812

PATIENT
  Age: 70 Year
  Sex: Female

DRUGS (8)
  1. EPADEL S [Concomitant]
     Route: 048
     Dates: start: 20120322
  2. ALLOPURINOL [Concomitant]
     Route: 048
     Dates: start: 20120517
  3. RIBAVIRIN [Concomitant]
     Route: 048
     Dates: start: 20120514
  4. FAMOTIDINE [Concomitant]
     Route: 048
     Dates: start: 20120322
  5. PEGINTERFERON ALFA-2B [Concomitant]
     Route: 058
  6. TELAVIC (TELAPREVIR) [Suspect]
     Indication: HEPATITIS C
     Route: 048
     Dates: start: 20120322, end: 20120522
  7. RIBAVIRIN [Concomitant]
     Route: 048
     Dates: end: 20120513
  8. TELAVIC (TELAPREVIR) [Suspect]
     Route: 048
     Dates: start: 20120523

REACTIONS (2)
  - RENAL IMPAIRMENT [None]
  - HYPERURICAEMIA [None]
